FAERS Safety Report 8882185 (Version 1)
Quarter: 2012Q4

REPORT INFORMATION
  Report Type: 
  Country: FR (occurrence: FR)
  Receive Date: 20121105
  Receipt Date: 20121105
  Transmission Date: 20130627
  Serious: Yes (Hospitalization)
  Sender: FDA-Public Use
  Company Number: FR-JNJFOC-20121016077

PATIENT
  Age: 83 Year
  Sex: Female

DRUGS (6)
  1. RISPERDAL [Suspect]
     Indication: PRODUCT USED FOR UNKNOWN INDICATION
     Route: 048
  2. RISPERDAL [Suspect]
     Indication: PRODUCT USED FOR UNKNOWN INDICATION
     Route: 048
  3. LERCAN [Concomitant]
     Indication: PRODUCT USED FOR UNKNOWN INDICATION
     Route: 048
  4. DETENSIEL [Concomitant]
     Indication: PRODUCT USED FOR UNKNOWN INDICATION
     Route: 048
  5. PRAXILENE [Concomitant]
     Indication: PRODUCT USED FOR UNKNOWN INDICATION
     Route: 048
  6. TERCIAN [Concomitant]
     Indication: PRODUCT USED FOR UNKNOWN INDICATION
     Route: 048

REACTIONS (2)
  - Extrapyramidal disorder [Recovered/Resolved]
  - Drug prescribing error [Recovered/Resolved]
